FAERS Safety Report 20241004 (Version 2)
Quarter: 2022Q1

REPORT INFORMATION
  Report Type: Report from Study
  Country: FR (occurrence: FR)
  Receive Date: 20211228
  Receipt Date: 20220126
  Transmission Date: 20220423
  Serious: Yes (Hospitalization, Other)
  Sender: FDA-Public Use
  Company Number: FR-GILEAD-2021-0562819

PATIENT
  Sex: Female

DRUGS (1)
  1. SACITUZUMAB GOVITECAN [Suspect]
     Active Substance: SACITUZUMAB GOVITECAN
     Indication: Product used for unknown indication
     Route: 042

REACTIONS (3)
  - Metastases to central nervous system [Unknown]
  - Hemiplegia [Unknown]
  - Fatigue [Unknown]
